FAERS Safety Report 6829037-X (Version None)
Quarter: 2010Q3

REPORT INFORMATION
  Report Type: 
  Country: None (occurrence: None)
  Receive Date: 20100709
  Receipt Date: 20070227
  Transmission Date: 20110219
  Serious: No
  Sender: FDA-Public Use
  Company Number: US-PFIZER INC-2007006451

PATIENT
  Sex: Female
  Weight: 87.09 kg

DRUGS (11)
  1. CHANTIX [Suspect]
     Indication: SMOKING CESSATION THERAPY
     Dates: start: 20070109
  2. NEURONTIN [Concomitant]
  3. LABETALOL HCL [Concomitant]
  4. PRINIVIL [Concomitant]
  5. CLONIDINE [Concomitant]
  6. ZELNORM [Concomitant]
  7. PHENOBARBITAL [Concomitant]
  8. ATENOLOL [Concomitant]
  9. METFORMIN HCL [Concomitant]
  10. CADUET [Concomitant]
  11. ALL OTHER THERAPEUTIC PRODUCTS [Concomitant]

REACTIONS (1)
  - DRUG INEFFECTIVE [None]
